FAERS Safety Report 5814928-9 (Version None)
Quarter: 2008Q3

REPORT INFORMATION
  Report Type: 
  Country: None (occurrence: None)
  Receive Date: 20080718
  Receipt Date: 20080710
  Transmission Date: 20090109
  Serious: Yes (Other)
  Sender: FDA-Public Use
  Company Number: PHHY2008BR14021

PATIENT
  Sex: Female
  Weight: 67 kg

DRUGS (6)
  1. LIORESAL [Suspect]
     Dosage: 10 MG, BID
     Route: 048
     Dates: start: 20080702, end: 20080703
  2. OMEPRAZOLE [Concomitant]
     Dosage: 20 MG, QD
     Dates: start: 20080702, end: 20080704
  3. DIGESAN [Concomitant]
     Dosage: 10 MG, TID
     Route: 048
     Dates: start: 20080702, end: 20080703
  4. HYDROCHLOROTHIAZIDE [Concomitant]
     Dosage: 25 MG, QD
     Route: 048
     Dates: start: 20080702, end: 20080703
  5. NIFEDIPINE [Concomitant]
     Indication: BLOOD PRESSURE INCREASED
     Dosage: 20 MG, BID
     Dates: start: 19980101
  6. ATENOLOL [Concomitant]
     Indication: HYPERTENSION
     Dosage: 50 MG, BID
     Dates: start: 19980101

REACTIONS (10)
  - DIZZINESS [None]
  - DYSPNOEA [None]
  - HEADACHE [None]
  - HYPERTENSION [None]
  - INAPPROPRIATE AFFECT [None]
  - NECK PAIN [None]
  - PALPITATIONS [None]
  - PARAESTHESIA [None]
  - SOMNOLENCE [None]
  - TONGUE PARALYSIS [None]
